FAERS Safety Report 5228693-X (Version None)
Quarter: 2007Q1

REPORT INFORMATION
  Report Type: 
  Country: None (occurrence: None)
  Receive Date: 20070205
  Receipt Date: 20070124
  Transmission Date: 20070707
  Serious: Yes (Hospitalization, Other)
  Sender: FDA-Public Use
  Company Number: PHNR2004AU00794

PATIENT
  Sex: Female

DRUGS (8)
  1. CLOZARIL [Suspect]
     Dosage: 12 - 600 MG/DAY
     Dates: start: 19960125, end: 19960501
  2. CLOZARIL [Suspect]
     Dosage: 13 - 550 MG/DAY
     Dates: start: 20000510, end: 20010401
  3. CLOZARIL [Suspect]
     Dosage: 12.5 - 350 MG/DAY
     Dates: start: 20010427, end: 20020301
  4. CLOZARIL [Suspect]
     Dosage: 50 - 600 MG/DAY
     Dates: start: 20020311, end: 20020901
  5. CLOZARIL [Suspect]
     Dosage: 25 - 600MG/DAY
     Dates: start: 20020925, end: 20040503
  6. CLOZARIL [Suspect]
     Dosage: 300MG DAILY
     Route: 048
     Dates: start: 20040514, end: 20061030
  7. CLOZARIL [Suspect]
     Dates: end: 20061102
  8. ANTIHYPERTENSIVE DRUGS [Concomitant]

REACTIONS (6)
  - ABDOMINAL SYMPTOM [None]
  - INTESTINAL FUNCTIONAL DISORDER [None]
  - LAPAROTOMY [None]
  - MENTAL DISORDER [None]
  - PSYCHOTIC DISORDER [None]
  - SMALL INTESTINAL OBSTRUCTION [None]
